FAERS Safety Report 5788431-9 (Version None)
Quarter: 2008Q2

REPORT INFORMATION
  Report Type: 
  Country: None (occurrence: None)
  Receive Date: 20080623
  Receipt Date: 20080214
  Transmission Date: 20081010
  Serious: Yes (Life-Threatening, Hospitalization, Other)
  Sender: FDA-Public Use
  Company Number: 2008US000512

PATIENT
  Age: 73 Year
  Sex: Female

DRUGS (9)
  1. PROGRAF [Suspect]
     Indication: RHEUMATOID ARTHRITIS
     Dosage: 2 DF, UID/QD, ORAL
     Route: 048
     Dates: start: 20070501
  2. ENBREL [Suspect]
     Indication: RHEUMATOID ARTHRITIS
     Dosage: 25 MG, UNK, SUBCUTANEOUS
     Route: 058
     Dates: start: 20071203, end: 20080101
  3. RHEUMATREX [Suspect]
     Indication: RHEUMATOID ARTHRITIS
     Dosage: 6 MG, WEEKLY, ORAL
     Route: 048
     Dates: start: 20030601
  4. PANLADINE (TICLOPIDINE HYDROCHLORIDE) [Concomitant]
  5. ZOLPIDEM TARTRATE [Concomitant]
  6. NICORANDIL (NICORANDIL) [Concomitant]
  7. GASTER [Concomitant]
  8. ALENDRONATE SODIUM [Concomitant]
  9. ISOSORBIDE DINITRATE [Concomitant]

REACTIONS (10)
  - ANOREXIA [None]
  - BEDRIDDEN [None]
  - BONE MARROW FAILURE [None]
  - CYTOMEGALOVIRUS INFECTION [None]
  - DIARRHOEA [None]
  - INTERSTITIAL LUNG DISEASE [None]
  - LUNG CONSOLIDATION [None]
  - OEDEMA PERIPHERAL [None]
  - PLEURAL EFFUSION [None]
  - VOMITING [None]
